FAERS Safety Report 19171859 (Version 2)
Quarter: 2024Q1

REPORT INFORMATION
  Report Type: Spontaneous
  Country: CA (occurrence: CA)
  Receive Date: 20210423
  Receipt Date: 20240321
  Transmission Date: 20240410
  Serious: Yes (Other)
  Sender: FDA-Public Use
  Company Number: CA-BAUSCH-BL-2021-013248

PATIENT
  Age: 66 Year
  Sex: Female

DRUGS (7)
  1. ALBUTEROL [Suspect]
     Active Substance: ALBUTEROL
     Indication: Product used for unknown indication
     Route: 065
  2. ALVESCO [Suspect]
     Active Substance: CICLESONIDE
     Indication: Product used for unknown indication
     Dosage: AEROSOL, METERED DOSE
     Route: 055
  3. AZITHROMYCIN ANHYDROUS [Suspect]
     Active Substance: AZITHROMYCIN ANHYDROUS
     Indication: Prophylaxis
     Route: 065
  4. NUCALA [Suspect]
     Active Substance: MEPOLIZUMAB
     Indication: Asthma
     Route: 042
  5. PREDNISONE [Suspect]
     Active Substance: PREDNISONE
     Indication: Product used for unknown indication
     Route: 065
  6. TIOTROPIUM BROMIDE [Suspect]
     Active Substance: TIOTROPIUM BROMIDE
     Indication: Product used for unknown indication
     Route: 065
  7. ZENHALE [Suspect]
     Active Substance: FORMOTEROL FUMARATE\MOMETASONE FUROATE
     Indication: Product used for unknown indication
     Dosage: AEROSOL, METERED?DOSE
     Route: 065

REACTIONS (11)
  - Asthma [Unknown]
  - Full blood count abnormal [Unknown]
  - Dyspnoea [Unknown]
  - Increased upper airway secretion [Unknown]
  - Loss of personal independence in daily activities [Unknown]
  - Polymyositis [Unknown]
  - Sleep apnoea syndrome [Unknown]
  - Sleep disorder due to a general medical condition [Unknown]
  - Thyroid disorder [Unknown]
  - Wheezing [Unknown]
  - Therapeutic product effect incomplete [Unknown]
